FAERS Safety Report 8036980-5 (Version None)
Quarter: 2012Q1

REPORT INFORMATION
  Report Type: 
  Country: None (occurrence: None)
  Receive Date: 20120111
  Receipt Date: 20120109
  Transmission Date: 20120608
  Serious: No
  Sender: FDA-Public Use
  Company Number: US-PFIZER INC-2012007312

PATIENT
  Sex: Female
  Weight: 38.549 kg

DRUGS (3)
  1. MECLIZINE [Concomitant]
     Indication: DIZZINESS
     Dosage: UNK
  2. CHANTIX [Suspect]
     Indication: SMOKING CESSATION THERAPY
     Dosage: UNK
     Route: 048
     Dates: start: 20050101, end: 20050101
  3. ASPIRIN [Concomitant]
     Dosage: 81 MG, DAILY

REACTIONS (1)
  - ABNORMAL BEHAVIOUR [None]
